FAERS Safety Report 5337092-1 (Version None)
Quarter: 2007Q2

REPORT INFORMATION
  Report Type: 
  Country: None (occurrence: None)
  Receive Date: 20070529
  Receipt Date: 20070526
  Transmission Date: 20071010
  Serious: Yes (Death)
  Sender: FDA-Public Use
  Company Number: IN-BRISTOL-MYERS SQUIBB COMPANY-13795059

PATIENT
  Age: 76 Year
  Sex: Female

DRUGS (2)
  1. TAXOL [Suspect]
     Route: 042
     Dates: start: 20070119
  2. PARAPLATIN [Suspect]
     Route: 042
     Dates: start: 20070119

REACTIONS (2)
  - COUGH [None]
  - PNEUMONIA [None]
